FAERS Safety Report 25905650 (Version 1)
Quarter: 2025Q4

REPORT INFORMATION
  Report Type: Spontaneous
  Country: EU (occurrence: EU)
  Receive Date: 20251010
  Receipt Date: 20251010
  Transmission Date: 20260117
  Serious: Yes (Other)
  Sender: BAXTER
  Company Number: EU-MLMSERVICE-20250922-PI653176-00273-1

PATIENT
  Age: 16 Year
  Sex: Male

DRUGS (23)
  1. PROPOFOL [Suspect]
     Active Substance: PROPOFOL
     Indication: Status epilepticus
     Dosage: 50 MG, INFUSION
     Route: 065
  2. PROPOFOL [Suspect]
     Active Substance: PROPOFOL
     Indication: Respiratory failure
     Dosage: 40 MG, INFUSION
     Route: 065
  3. PROPOFOL [Suspect]
     Active Substance: PROPOFOL
     Indication: Coma
  4. VALPROIC ACID [Concomitant]
     Active Substance: VALPROIC ACID
     Indication: Status epilepticus
     Dosage: 1800 MG, QD
     Route: 042
  5. VALPROIC ACID [Concomitant]
     Active Substance: VALPROIC ACID
     Indication: Respiratory failure
     Dosage: 1500 MG, QD
     Route: 042
  6. VALPROIC ACID [Concomitant]
     Active Substance: VALPROIC ACID
     Dosage: 1200 MG, QD
     Route: 042
  7. VALPROIC ACID [Concomitant]
     Active Substance: VALPROIC ACID
     Dosage: 1000 MG, QD
     Route: 042
  8. PHENYTOIN [Concomitant]
     Active Substance: PHENYTOIN
     Indication: Status epilepticus
     Dosage: 1000 MG, QD
     Route: 065
  9. PHENYTOIN [Concomitant]
     Active Substance: PHENYTOIN
     Indication: Respiratory failure
     Dosage: 600 MG, QD
     Route: 065
  10. PHENYTOIN [Concomitant]
     Active Substance: PHENYTOIN
     Dosage: 500 MG, QD
     Route: 065
  11. PHENYTOIN [Concomitant]
     Active Substance: PHENYTOIN
     Dosage: 300 MG, QD
     Route: 065
  12. PHENYTOIN [Concomitant]
     Active Substance: PHENYTOIN
     Dosage: 250 MG, QD
     Route: 065
  13. PHENYTOIN [Concomitant]
     Active Substance: PHENYTOIN
     Dosage: 225 MG, QD
     Route: 065
  14. PHENYTOIN [Concomitant]
     Active Substance: PHENYTOIN
     Dosage: 150 MG, QD
     Route: 065
  15. PHENYTOIN [Concomitant]
     Active Substance: PHENYTOIN
     Dosage: 100-50 MG, QD
     Route: 065
  16. MIDAZOLAM [Concomitant]
     Active Substance: MIDAZOLAM
     Indication: Status epilepticus
     Dosage: 0.7 MG/KG, 1X AN HOUR
     Route: 065
  17. MIDAZOLAM [Concomitant]
     Active Substance: MIDAZOLAM
     Indication: Respiratory failure
     Dosage: 0.5 MG/KG, 1X AN HOUR
  18. MIDAZOLAM [Concomitant]
     Active Substance: MIDAZOLAM
     Dosage: 0.25 MG/KG, 1X AN HOUR
     Route: 065
  19. MIDAZOLAM [Concomitant]
     Active Substance: MIDAZOLAM
     Dosage: 0.14 MG/KG, 1X AN HOUR
     Route: 065
  20. MIDAZOLAM [Concomitant]
     Active Substance: MIDAZOLAM
     Dosage: 0.1 MG/KG, 1X AN HOUR
     Route: 065
  21. MIDAZOLAM [Concomitant]
     Active Substance: MIDAZOLAM
     Dosage: 0.05 MG/KG, 1X AN HOUR
     Route: 065
  22. MIDAZOLAM [Concomitant]
     Active Substance: MIDAZOLAM
     Dosage: 0.04 MG/KG, 1X AN HOUR
     Route: 065
  23. MIDAZOLAM [Concomitant]
     Active Substance: MIDAZOLAM
     Dosage: {0.04 MG/KG, 1X AN HOUR
     Route: 065

REACTIONS (2)
  - Cerebral atrophy [Unknown]
  - Liver injury [Unknown]
